FAERS Safety Report 11933763 (Version 1)
Quarter: 2016Q1

REPORT INFORMATION
  Report Type: Spontaneous
  Country: CA (occurrence: CA)
  Receive Date: 20160121
  Receipt Date: 20160121
  Transmission Date: 20160526
  Serious: Yes (Other)
  Sender: FDA-Public Use
  Company Number: CA-ROCHE-1697685

PATIENT
  Sex: Female

DRUGS (1)
  1. AVASTIN [Suspect]
     Active Substance: BEVACIZUMAB
     Indication: CHEMOTHERAPY
     Route: 051

REACTIONS (3)
  - Eye irritation [Unknown]
  - Ocular hyperaemia [Unknown]
  - Eye haemorrhage [Unknown]
